FAERS Safety Report 15588569 (Version 26)
Quarter: 2022Q2

REPORT INFORMATION
  Report Type: Spontaneous
  Country: GB (occurrence: GB)
  Receive Date: 20181105
  Receipt Date: 20220609
  Transmission Date: 20220721
  Serious: Yes (Death, Life-Threatening, Hospitalization, Disabling, Other)
  Sender: FDA-Public Use
  Company Number: GB-AUROBINDO-AUR-APL-2018-053650

PATIENT
  Age: 47 Year
  Sex: Female

DRUGS (29)
  1. AMLODIPINE [Suspect]
     Active Substance: AMLODIPINE BESYLATE
     Indication: Hypertension
     Dosage: 100 MILLIGRAM, ONCE A DAY
     Route: 048
     Dates: start: 20180928
  2. EZETIMIBE [Suspect]
     Active Substance: EZETIMIBE
     Indication: Blood cholesterol increased
     Dosage: 10 MILLIGRAM, ONCE A DAY
     Route: 048
  3. EZETIMIBE [Suspect]
     Active Substance: EZETIMIBE
     Indication: Hypercholesterolaemia
  4. LOSARTAN [Suspect]
     Active Substance: LOSARTAN
     Indication: Hypercholesterolaemia
     Dosage: 100 MILLIGRAM, ONCE A DAY
     Route: 048
     Dates: end: 20180928
  5. LOSARTAN [Suspect]
     Active Substance: LOSARTAN
     Indication: Schizophrenia
     Dosage: 200 MILLIGRAM, ONCE A DAY
     Route: 048
     Dates: start: 20170317, end: 20180928
  6. LOSARTAN [Suspect]
     Active Substance: LOSARTAN
     Indication: Hypertension
  7. PRAVASTATIN [Suspect]
     Active Substance: PRAVASTATIN
     Indication: Blood cholesterol increased
     Dosage: 40 MILLIGRAM, ONCE A DAY
     Route: 048
  8. PRAVASTATIN [Suspect]
     Active Substance: PRAVASTATIN
     Indication: Depression
     Dosage: 50 MILLIGRAM, ONCE A DAY
     Route: 048
     Dates: start: 201709
  9. SERTRALINE [Suspect]
     Active Substance: SERTRALINE HYDROCHLORIDE
     Indication: Depression
     Dosage: 50 MILLIGRAM, ONCE A DAY
     Route: 048
     Dates: start: 201709
  10. CLOZARIL [Suspect]
     Active Substance: CLOZAPINE
     Indication: Schizophrenia
     Dosage: 58000 MILLIGRAM
     Route: 065
  11. CLOZARIL [Suspect]
     Active Substance: CLOZAPINE
     Indication: Blood cholesterol increased
     Dosage: 10 MILLIGRAM, QD
     Route: 048
     Dates: start: 20170317, end: 20180928
  12. CLOZARIL [Suspect]
     Active Substance: CLOZAPINE
     Dosage: 10 MILLIGRAM, ONCE A DAY
     Route: 048
     Dates: start: 20180928
  13. CLOZARIL [Suspect]
     Active Substance: CLOZAPINE
     Dosage: 100 MILLIGRAM, ONCE A DAY
     Route: 048
     Dates: end: 20180928
  14. CLOZARIL [Suspect]
     Active Substance: CLOZAPINE
     Dosage: 200 MILLIGRAM, ONCE A DAY
     Route: 048
     Dates: start: 20170317, end: 20180928
  15. CLOZAPINE [Suspect]
     Active Substance: CLOZAPINE
     Indication: Schizophrenia
     Dosage: 200 MILLIGRAM, QD (PM)
     Route: 048
     Dates: start: 20170317, end: 20180928
  16. CLOZAPINE [Suspect]
     Active Substance: CLOZAPINE
     Dosage: 100 MILLIGRAM, ONCE A DAY
     Route: 048
     Dates: start: 20180928, end: 20180928
  17. FELODIPINE [Suspect]
     Active Substance: FELODIPINE
     Indication: Hypertension
     Dosage: 10 MILLIGRAM, QD, (10 MG QD)
     Route: 048
     Dates: end: 20180928
  18. HUMALOG MIX50/50 [Suspect]
     Active Substance: INSULIN LISPRO
     Indication: Diabetes mellitus
     Dosage: 360 INTERNATIONAL UNIT, ONCE A DAY(120 IU, TID(60 IU ALSO RECEIVED) )
     Route: 048
     Dates: end: 20180928
  19. HUMALOG MIX50/50 [Suspect]
     Active Substance: INSULIN LISPRO
     Dosage: 120 INTERNATIONAL UNIT, 3 TIMES A DAY
     Route: 048
     Dates: end: 20180928
  20. HUMALOG MIX50/50 [Suspect]
     Active Substance: INSULIN LISPRO
     Dosage: 60 INTERNATIONAL UNIT, 3 TIMES A DAY
     Route: 048
     Dates: end: 20180928
  21. HUMALOG MIX50/50 [Suspect]
     Active Substance: INSULIN LISPRO
     Dosage: 540 INTERNATIONAL UNIT, ONCE A DAY
     Route: 048
  22. HUMALOG [Suspect]
     Active Substance: INSULIN LISPRO
     Indication: Diabetes mellitus
     Dosage: 60 INTERNATIONAL UNIT, TID
     Route: 048
     Dates: end: 20180928
  23. HUMALOG [Suspect]
     Active Substance: INSULIN LISPRO
     Dosage: 60 INTERNATIONAL UNIT, ONCE A DAY (60 INTERNATIONAL UNIT, TID)
     Route: 048
     Dates: end: 20180928
  24. HUMALOG [Suspect]
     Active Substance: INSULIN LISPRO
     Dosage: 180 INTERNATIONAL UNIT, ONCE A DAY
     Route: 048
     Dates: end: 20180928
  25. HUMALOG [Suspect]
     Active Substance: INSULIN LISPRO
     Dosage: 120 INTERNATIONAL UNIT, ONCE A DAY (120 INTERNATIONAL UNIT, 3 TIMES A DAY)
     Route: 048
     Dates: end: 20180928
  26. HUMALOG [Suspect]
     Active Substance: INSULIN LISPRO
     Dosage: 360 INTERNATIONAL UNIT, 3 TIMES A DAY
     Route: 048
     Dates: end: 20180928
  27. LANSOPRAZOLE [Suspect]
     Active Substance: LANSOPRAZOLE
     Indication: Gastrooesophageal reflux disease
     Dosage: 30 MILLIGRAM, ONCE A DAY
     Route: 065
     Dates: end: 20180928
  28. LANSOPRAZOLE [Suspect]
     Active Substance: LANSOPRAZOLE
     Indication: Blood cholesterol increased
     Dosage: 40 MILLIGRAM, ONCE A DAY
     Route: 048
     Dates: end: 20180928
  29. LANSOPRAZOLE [Suspect]
     Active Substance: LANSOPRAZOLE
     Indication: Gastrooesophageal reflux disease

REACTIONS (9)
  - Pneumonia [Fatal]
  - Multiple organ dysfunction syndrome [Fatal]
  - Loss of consciousness [Fatal]
  - Incorrect route of product administration [Fatal]
  - Medication error [Fatal]
  - Overdose [Fatal]
  - Intentional product misuse [Fatal]
  - Off label use [Fatal]
  - Drug abuse [Unknown]

NARRATIVE: CASE EVENT DATE: 20180101
